FAERS Safety Report 17336360 (Version 2)
Quarter: 2020Q2

REPORT INFORMATION
  Report Type: Spontaneous
  Country: US (occurrence: US)
  Receive Date: 20200128
  Receipt Date: 20200401
  Transmission Date: 20200713
  Serious: No
  Sender: FDA-Public Use
  Company Number: US-ASTRAZENECA-2020SE04298

PATIENT
  Sex: Female

DRUGS (1)
  1. SYMBICORT [Suspect]
     Active Substance: BUDESONIDE\FORMOTEROL FUMARATE DIHYDRATE
     Indication: DYSPNOEA
     Dosage: 160/4.5 MCG TWICE A DAY
     Route: 055
     Dates: start: 20191024

REACTIONS (4)
  - Intentional device misuse [Unknown]
  - Product packaging issue [Unknown]
  - Eye disorder [Unknown]
  - Product dose omission [Unknown]
